FAERS Safety Report 5426132-7 (Version None)
Quarter: 2007Q3

REPORT INFORMATION
  Report Type: 
  Country: None (occurrence: None)
  Receive Date: 20070827
  Receipt Date: 20070820
  Transmission Date: 20080115
  Serious: Yes (Other)
  Sender: FDA-Public Use
  Company Number: ES-ASTRAZENECA-2007AC01582

PATIENT

DRUGS (4)
  1. PROPOFOL [Suspect]
     Indication: ANAESTHESIA
     Route: 042
  2. TOPIRAMATE [Suspect]
     Indication: EPILEPSY
  3. REMIFENTANYL [Concomitant]
     Indication: ANAESTHESIA
  4. ROCURONIUM BROMIDE [Concomitant]
     Indication: ANAESTHESIA

REACTIONS (2)
  - METABOLIC ACIDOSIS [None]
  - PROPOFOL INFUSION SYNDROME [None]
